FAERS Safety Report 9807349 (Version 1)
Quarter: 2014Q1

REPORT INFORMATION
  Report Type: Spontaneous
  Country: FR (occurrence: FR)
  Receive Date: 20140110
  Receipt Date: 20140110
  Transmission Date: 20141002
  Serious: Yes (Hospitalization, Other)
  Sender: FDA-Public Use
  Company Number: FR-MERCK-1401FRA001230

PATIENT
  Age: 68 Year
  Sex: Female

DRUGS (9)
  1. TEMODAL [Suspect]
     Indication: GLIOBLASTOMA
     Dosage: UNK
     Dates: end: 20131105
  2. EUPANTOL [Concomitant]
     Dosage: 40 MG, BID
  3. DOLIPRANE [Concomitant]
  4. TEMESTA [Concomitant]
  5. PROPRANOLOL HYDROCHLORIDE [Concomitant]
     Dosage: 30 MG, QD
  6. XYZALL [Concomitant]
  7. ATARAX (ALPRAZOLAM) [Concomitant]
  8. SEROPLEX [Concomitant]
     Dosage: 10 MG, QD
  9. SOLUPRED [Concomitant]
     Dosage: 5 MG, QD

REACTIONS (1)
  - Febrile bone marrow aplasia [Recovered/Resolved]
